FAERS Safety Report 10174481 (Version 1)
Quarter: 2014Q2

REPORT INFORMATION
  Report Type: Spontaneous
  Country: US (occurrence: None)
  Receive Date: 20140514
  Receipt Date: 20140514
  Transmission Date: 20141212
  Serious: Yes (Disabling, Other)
  Sender: FDA-Public Use
  Company Number: None

PATIENT
  Age: 64 Year
  Sex: Male
  Weight: 74.84 kg

DRUGS (3)
  1. ALLEGRA-D [Suspect]
     Indication: MULTIPLE ALLERGIES
     Route: 048
     Dates: start: 20140418, end: 20140420
  2. ALLEGRA-D [Suspect]
     Indication: RHINORRHOEA
     Route: 048
     Dates: start: 20140418, end: 20140420
  3. ALLEGRA-D [Suspect]
     Indication: SNEEZING
     Route: 048
     Dates: start: 20140418, end: 20140420

REACTIONS (2)
  - Dysuria [None]
  - Urethral obstruction [None]
